FAERS Safety Report 4489254-3 (Version None)
Quarter: 2004Q4

REPORT INFORMATION
  Report Type: 
  Country: None (occurrence: None)
  Receive Date: 20041026
  Receipt Date: 20041015
  Transmission Date: 20050328
  Serious: Yes (Death, Other)
  Sender: FDA-Public Use
  Company Number: 2004078504

PATIENT
  Age: 82 Year
  Sex: Male

DRUGS (9)
  1. SULPERAZON  (CEFOPERAZONE, SULBACTAM) [Suspect]
     Indication: ILL-DEFINED DISORDER
     Dosage: INTRAVENOUS
     Route: 042
     Dates: start: 20040711, end: 20040701
  2. CELEBREX [Suspect]
     Indication: ILL-DEFINED DISORDER
  3. CARDURA XL [Suspect]
     Indication: ILL-DEFINED DISORDER
     Dosage: ORAL
     Route: 048
  4. TAMSULOSIN HYDROCHLORIDE (TAMSULOSIN HYDROCHLORIDE) [Concomitant]
  5. AMBROXOL HYDROCHLORIDE (AMBROXOL HYDROCHLORIDE) [Concomitant]
  6. OMEPRAZOLE [Concomitant]
  7. CEFUROXIME [Concomitant]
  8. ADENOSINE TRIPHOSPHATE (ADENOSINE TRIPHOSPHATE) [Concomitant]
  9. METOCLOPRAMIDE [Concomitant]

REACTIONS (5)
  - CARDIOPULMONARY FAILURE [None]
  - GASTROINTESTINAL HAEMORRHAGE [None]
  - JAUNDICE [None]
  - PYREXIA [None]
  - TETANY [None]
